FAERS Safety Report 11266078 (Version 3)
Quarter: 2021Q2

REPORT INFORMATION
  Report Type: Spontaneous
  Country: US (occurrence: US)
  Receive Date: 20150713
  Receipt Date: 20210607
  Transmission Date: 20210716
  Serious: Yes (Hospitalization, Other)
  Sender: FDA-Public Use
  Company Number: US-FRI-1000077846

PATIENT
  Sex: Female
  Weight: 10.8 kg

DRUGS (1)
  1. VILAZODONE HCL UNK [Suspect]
     Active Substance: VILAZODONE HYDROCHLORIDE
     Indication: PRODUCT USED FOR UNKNOWN INDICATION
     Dosage: 40 MG, 10 TABLETS, 37 MG/KG

REACTIONS (9)
  - Seizure [Recovered/Resolved]
  - Mental status changes [Recovered/Resolved]
  - Sluggishness [Recovered/Resolved]
  - Muscle rigidity [Recovered/Resolved]
  - Toxicity to various agents [Recovered/Resolved]
  - Slow response to stimuli [Recovered/Resolved]
  - Accidental exposure to product by child [Recovered/Resolved]
  - Clonus [Recovered/Resolved]
  - Tachycardia [Recovered/Resolved]
